FAERS Safety Report 5804826-9 (Version None)
Quarter: 2008Q3

REPORT INFORMATION
  Report Type: 
  Country: None (occurrence: None)
  Receive Date: 20080709
  Receipt Date: 20080626
  Transmission Date: 20090109
  Serious: Yes (Other)
  Sender: FDA-Public Use
  Company Number: US-ELI_LILLY_AND_COMPANY-US200806006432

PATIENT
  Age: 42 Year
  Sex: Female

DRUGS (2)
  1. STRATTERA [Suspect]
     Dosage: 80 MG, DAILY (1/D)
     Route: 048
  2. ADDERALL XR 10 [Concomitant]
     Indication: ATTENTION DEFICIT/HYPERACTIVITY DISORDER
     Dosage: 20 MG, DAILY (1/D)
     Route: 048

REACTIONS (2)
  - ROAD TRAFFIC ACCIDENT [None]
  - SOMNAMBULISM [None]
